FAERS Safety Report 9091324 (Version 1)
Quarter: 2013Q1

REPORT INFORMATION
  Report Type: Report from Study
  Country: US (occurrence: US)
  Receive Date: 20130201
  Receipt Date: 20130201
  Transmission Date: 20140127
  Serious: No
  Sender: FDA-Public Use
  Company Number: US-ABBOTT-12P-163-1020171-00

PATIENT
  Age: 67 Year
  Sex: Female

DRUGS (7)
  1. HUMIRA [Suspect]
     Indication: PSORIATIC ARTHROPATHY
     Dates: start: 20121102, end: 20121207
  2. DICLOFENAC [Concomitant]
     Indication: PAIN
  3. TRAZODONE [Concomitant]
     Indication: PRODUCT USED FOR UNKNOWN INDICATION
     Dosage: ONCE A NIGHT
  4. LITHIUM CARBONATE [Concomitant]
     Indication: MOOD SWINGS
     Dosage: 2 AT NIGHT
  5. METHOTREXATE [Concomitant]
     Indication: PRODUCT USED FOR UNKNOWN INDICATION
     Dosage: 4 ONCE A WEEK
  6. ISONIAZID [Concomitant]
     Indication: PSORIATIC ARTHROPATHY
     Dosage: ONCE DAILY
  7. PAROXETINE [Concomitant]
     Indication: BIPOLAR DISORDER
     Dosage: AT NIGHT

REACTIONS (4)
  - Device malfunction [Unknown]
  - Wrong technique in drug usage process [Unknown]
  - Injection site pain [Unknown]
  - Injection site pain [Unknown]
